FAERS Safety Report 24640975 (Version 1)
Quarter: 2024Q4

REPORT INFORMATION
  Report Type: Report from Study
  Country: ES (occurrence: ES)
  Receive Date: 20241120
  Receipt Date: 20241120
  Transmission Date: 20250115
  Serious: Yes (Hospitalization)
  Sender: Y-MABS THERAPEUTICS
  Company Number: ES-Y-MABS THERAPEUTICS, INC.-COM2021-ES-000425

PATIENT

DRUGS (15)
  1. NAXITAMAB [Suspect]
     Active Substance: NAXITAMAB
     Indication: Neuroblastoma
     Dosage: CYCLE 1, DOSE 1, 3 MG/KG
     Route: 042
     Dates: start: 20210419, end: 20210419
  2. NAXITAMAB [Suspect]
     Active Substance: NAXITAMAB
     Dosage: CYCLE 2, DOSE 1
     Dates: start: 20210517, end: 20210517
  3. NAXITAMAB [Suspect]
     Active Substance: NAXITAMAB
     Dosage: CYCLE 2, DOSE 3, 3.0 MG/KG
     Route: 042
     Dates: start: 20210521, end: 20210521
  4. NAXITAMAB [Suspect]
     Active Substance: NAXITAMAB
     Dosage: CYCLE 3, DOSE 1
     Dates: start: 20210614, end: 20210614
  5. GRANULOCYTE-MACROPHAGE COLONY-STIMULATING FACTOR [Suspect]
     Active Substance: GRANULOCYTE-MACROPHAGE COLONY-STIMULATING FACTOR
     Indication: Neuroblastoma
     Dosage: CYCLE 1, DOSE 1, 250 ?G/M2
     Route: 058
     Dates: start: 20210414, end: 20210414
  6. GRANULOCYTE-MACROPHAGE COLONY-STIMULATING FACTOR [Suspect]
     Active Substance: GRANULOCYTE-MACROPHAGE COLONY-STIMULATING FACTOR
     Dosage: CYCLE 1, 250 ?G/M2
     Route: 058
     Dates: start: 20210418, end: 20210418
  7. GRANULOCYTE-MACROPHAGE COLONY-STIMULATING FACTOR [Suspect]
     Active Substance: GRANULOCYTE-MACROPHAGE COLONY-STIMULATING FACTOR
     Dosage: CYCLE 1, 500 ?G/M2
     Route: 058
     Dates: start: 20210419, end: 20210419
  8. GRANULOCYTE-MACROPHAGE COLONY-STIMULATING FACTOR [Suspect]
     Active Substance: GRANULOCYTE-MACROPHAGE COLONY-STIMULATING FACTOR
     Dosage: CYCLE 2, DOSE 5, 500 ?G/M2
     Route: 058
     Dates: start: 20210521, end: 20210521
  9. GABAPENTIN [Concomitant]
     Active Substance: GABAPENTIN
     Indication: Product used for unknown indication
     Dosage: 600 MG, QD
     Dates: start: 20210512, end: 20210512
  10. GABAPENTIN [Concomitant]
     Active Substance: GABAPENTIN
     Dosage: 600 MILLIGRAM, BID
     Dates: start: 20210513, end: 20210513
  11. GABAPENTIN [Concomitant]
     Active Substance: GABAPENTIN
     Dosage: 600 MILLIGRAM, TID
     Dates: start: 20210514, end: 20210521
  12. GABAPENTIN [Concomitant]
     Active Substance: GABAPENTIN
     Dosage: 600 MILLIGRAM, BID
     Dates: start: 20210522, end: 20210522
  13. GABAPENTIN [Concomitant]
     Active Substance: GABAPENTIN
     Dosage: 600 MILLIGRAM, QD
     Dates: start: 20210523, end: 20210523
  14. OMEGA-3 FATTY ACIDS [Concomitant]
     Active Substance: OMEGA-3 FATTY ACIDS
     Indication: Product used for unknown indication
     Dosage: UNK
     Route: 048
     Dates: start: 2021
  15. SULFAMETHOXAZOLE\TRIMETHOPRIM [Concomitant]
     Active Substance: SULFAMETHOXAZOLE\TRIMETHOPRIM
     Indication: Product used for unknown indication
     Dosage: 1 TABLET EVERY 12 HOURS ON FIRDAYS, SATURDAYS AND SUNDAYS

REACTIONS (1)
  - Acute kidney injury [Recovered/Resolved]

NARRATIVE: CASE EVENT DATE: 20210521
